FAERS Safety Report 8454149-7 (Version None)
Quarter: 2012Q2

REPORT INFORMATION
  Report Type: 
  Country: None (occurrence: None)
  Receive Date: 20120620
  Receipt Date: 20120611
  Transmission Date: 20120825
  Serious: Yes (Death)
  Sender: FDA-Public Use
  Company Number: DE-CELGENEUS-062-21660-12053006

PATIENT
  Age: 71 Year
  Sex: Female

DRUGS (12)
  1. PALLADONE [Concomitant]
     Indication: PAIN
     Route: 065
     Dates: start: 20120326
  2. METOCLOPRAMIDE [Concomitant]
     Indication: NAUSEA
     Dosage: 75 DROPS
     Route: 065
  3. BISOPROLOL FUMARATE [Concomitant]
     Indication: HYPERTENSION
     Dosage: 5 MILLIGRAM
     Route: 065
  4. DURAGESIC-100 [Concomitant]
     Indication: PAIN
     Dosage: 2400 MICROGRAM
     Route: 065
     Dates: start: 20120401
  5. PANTOPRAZOLE [Concomitant]
     Indication: PROPHYLAXIS
     Dosage: 40 MILLIGRAM
     Route: 065
  6. ABRAXANE [Suspect]
     Route: 065
     Dates: start: 20120123, end: 20120326
  7. DEXAMETHASONE [Concomitant]
     Dosage: 8 MILLIGRAM
     Route: 065
  8. DOXYCYCLINE [Concomitant]
     Indication: PLEURODESIS
     Route: 065
  9. RAMIPRIL [Concomitant]
     Indication: HYPERTENSION
     Dosage: 2.5 MILLIGRAM
     Route: 065
  10. HALOPERIDOL [Concomitant]
     Route: 065
  11. INSULIN [Concomitant]
     Indication: DIABETES MELLITUS
     Route: 065
     Dates: start: 20040101
  12. MOVIPREP [Concomitant]
     Dosage: 1 DOSAGE FORMS
     Route: 065

REACTIONS (1)
  - GENERAL PHYSICAL HEALTH DETERIORATION [None]
